FAERS Safety Report 6731622-0 (Version None)
Quarter: 2010Q2

REPORT INFORMATION
  Report Type: 
  Country: None (occurrence: None)
  Receive Date: 20100519
  Receipt Date: 20100514
  Transmission Date: 20101027
  Serious: Yes (Other)
  Sender: FDA-Public Use
  Company Number: MX-BAYER-201012967LA

PATIENT
  Age: 32 Year
  Sex: Female
  Weight: 65 kg

DRUGS (2)
  1. BETAFERON [Suspect]
     Indication: DRUG USE FOR UNKNOWN INDICATION
     Route: 058
     Dates: end: 20100101
  2. BETAFERON [Suspect]
     Route: 058
     Dates: start: 20100101

REACTIONS (4)
  - ASPHYXIA [None]
  - DIZZINESS [None]
  - NAUSEA [None]
  - UPPER RESPIRATORY TRACT INFECTION [None]
